FAERS Safety Report 18856483 (Version 1)
Quarter: 2021Q1

REPORT INFORMATION
  Report Type: Spontaneous
  Country: US (occurrence: US)
  Receive Date: 20210207
  Receipt Date: 20210207
  Transmission Date: 20210420
  Serious: No
  Sender: FDA-Public Use
  Company Number: US-009507513-2102USA000532

PATIENT
  Age: 9 Year
  Sex: Male

DRUGS (1)
  1. ASMANEX HFA [Suspect]
     Active Substance: MOMETASONE FUROATE
     Dosage: 100 MICROGRAM

REACTIONS (4)
  - Product administered to patient of inappropriate age [Unknown]
  - No adverse event [Unknown]
  - Product prescribing issue [Unknown]
  - Product use issue [Unknown]
